FAERS Safety Report 6398259-7 (Version None)
Quarter: 2009Q4

REPORT INFORMATION
  Report Type: 
  Country: None (occurrence: None)
  Receive Date: 20091007
  Receipt Date: 20090923
  Transmission Date: 20100525
  Serious: Yes (Death)
  Sender: FDA-Public Use
  Company Number: POMP-1000673

PATIENT
  Age: 1 Year
  Sex: Male
  Weight: 13 kg

DRUGS (1)
  1. MYOZYME [Suspect]
     Indication: GLYCOGEN STORAGE DISEASE TYPE II
     Dosage: INTRAVENOUS
     Route: 042
     Dates: start: 20071001

REACTIONS (3)
  - DISEASE PROGRESSION [None]
  - GLYCOGEN STORAGE DISEASE TYPE II [None]
  - HYPERTROPHIC CARDIOMYOPATHY [None]
